FAERS Safety Report 8085242-9 (Version None)
Quarter: 2012Q1

REPORT INFORMATION
  Report Type: 
  Country: None (occurrence: None)
  Receive Date: 20120128
  Receipt Date: 20110321
  Transmission Date: 20120608
  Serious: No
  Sender: FDA-Public Use
  Company Number: US-ABBOTT-11P-163-0713270-00

PATIENT
  Age: 40 Year
  Sex: Female

DRUGS (2)
  1. AMBIEN [Concomitant]
     Indication: INSOMNIA
     Dosage: AT BEDTIME
  2. HUMIRA [Suspect]
     Indication: PSORIATIC ARTHROPATHY
     Dates: start: 20090801

REACTIONS (2)
  - CYSTITIS [None]
  - HERPES ZOSTER [None]
